FAERS Safety Report 15449887 (Version 1)
Quarter: 2018Q3

REPORT INFORMATION
  Report Type: Spontaneous
  Country: US (occurrence: US)
  Receive Date: 20180926
  Receipt Date: 20180926
  Transmission Date: 20181010
  Serious: No
  Sender: FDA-Public Use
  Company Number: None

PATIENT
  Age: 21 Year
  Sex: Female
  Weight: 72 kg

DRUGS (17)
  1. XYREM [Suspect]
     Active Substance: SODIUM OXYBATE
     Indication: NARCOLEPSY
     Dosage: ?          QUANTITY:3.75 G GRAM(S);?
     Route: 048
     Dates: start: 20180720, end: 20180801
  2. CALCIUM [Concomitant]
     Active Substance: CALCIUM
  3. NAPROXEN SODIUM. [Concomitant]
     Active Substance: NAPROXEN SODIUM
  4. DICLCLOMINE [Concomitant]
  5. JUNEL [Concomitant]
     Active Substance: ETHINYL ESTRADIOL\NORETHINDRONE ACETATE
  6. XYREM [Suspect]
     Active Substance: SODIUM OXYBATE
     Indication: CATAPLEXY
     Dosage: ?          QUANTITY:3.75 G GRAM(S);?
     Route: 048
     Dates: start: 20180720, end: 20180801
  7. NO DRUG NAME [Concomitant]
  8. HYPERBIOTICS PRO?15 [Concomitant]
  9. ADVAIR HFA [Concomitant]
     Active Substance: FLUTICASONE PROPIONATE\SALMETEROL XINAFOATE
  10. ESOMEPRAZOL MAGNESIUM [Concomitant]
  11. BIOTIN [Concomitant]
     Active Substance: BIOTIN
  12. VITAMIN D3 [Concomitant]
     Active Substance: CHOLECALCIFEROL
  13. ALBUTEROL SULFATE. [Concomitant]
     Active Substance: ALBUTEROL SULFATE
  14. PROAIR HFA [Concomitant]
     Active Substance: ALBUTEROL SULFATE
  15. ALPRAZOLAM. [Concomitant]
     Active Substance: ALPRAZOLAM
  16. MONTELUKAST [Concomitant]
     Active Substance: MONTELUKAST SODIUM
  17. VITAMIN B12 [Concomitant]
     Active Substance: CYANOCOBALAMIN

REACTIONS (4)
  - Product quality issue [None]
  - Drug ineffective [None]
  - Product taste abnormal [None]
  - Headache [None]
